FAERS Safety Report 16802274 (Version 2)
Quarter: 2019Q3

REPORT INFORMATION
  Report Type: Spontaneous
  Country: DE (occurrence: DE)
  Receive Date: 20190912
  Receipt Date: 20190920
  Transmission Date: 20191005
  Serious: Yes (Other)
  Sender: FDA-Public Use
  Company Number: PHHY2019DE210599

PATIENT
  Age: 15 Year
  Sex: Male

DRUGS (13)
  1. DOXORUBICIN [Suspect]
     Active Substance: DOXORUBICIN
     Indication: SARCOMA
     Dosage: UNK (VAIA POLYCHEMOTHERAPY)
     Route: 065
  2. IFOSFAMIDE. [Suspect]
     Active Substance: IFOSFAMIDE
     Indication: SARCOMA
  3. METHYLPREDNISOLONE. [Suspect]
     Active Substance: METHYLPREDNISOLONE
     Indication: POLYNEUROPATHY IN MALIGNANT DISEASE
     Dosage: 1000 MG, QD
     Route: 065
  4. DOXORUBICIN [Suspect]
     Active Substance: DOXORUBICIN
     Indication: BRAIN SARCOMA
  5. IFOSFAMIDE. [Suspect]
     Active Substance: IFOSFAMIDE
     Indication: PARANEOPLASTIC NEUROLOGICAL SYNDROME
     Dosage: UNK (VAIA POLYCHEMOTHERAPY)
     Route: 065
  6. ACTINOMYCIN D [Concomitant]
     Active Substance: DACTINOMYCIN
     Indication: SARCOMA
     Dosage: UNK
     Route: 065
  7. DOXORUBICIN [Suspect]
     Active Substance: DOXORUBICIN
     Indication: PARANEOPLASTIC NEUROLOGICAL SYNDROME
  8. ACTINOMYCIN D [Concomitant]
     Active Substance: DACTINOMYCIN
     Indication: PARANEOPLASTIC NEUROLOGICAL SYNDROME
     Route: 065
  9. VINCRISTINE [Concomitant]
     Active Substance: VINCRISTINE
     Indication: BRAIN SARCOMA
  10. DACTINOMYCIN [Concomitant]
     Active Substance: DACTINOMYCIN
     Indication: BRAIN SARCOMA
     Dosage: UNK
     Route: 065
  11. IFOSFAMIDE. [Suspect]
     Active Substance: IFOSFAMIDE
     Indication: BRAIN SARCOMA
  12. VINCRISTINE [Concomitant]
     Active Substance: VINCRISTINE
     Indication: SARCOMA
     Dosage: 2 MG, UNK (RECEIVED TEN DOSES (1.5 MG/M2, MAXIMAL DOSE 2MG)
     Route: 065
  13. VINCRISTINE [Concomitant]
     Active Substance: VINCRISTINE
     Indication: PARANEOPLASTIC NEUROLOGICAL SYNDROME

REACTIONS (9)
  - Drug ineffective [Unknown]
  - Somnolence [Unknown]
  - Cardiomyopathy [Unknown]
  - Hallucination [Unknown]
  - Electrolyte imbalance [Unknown]
  - Encephalopathy [Recovering/Resolving]
  - Dizziness [Unknown]
  - Nephropathy [Unknown]
  - Electrolyte depletion [Unknown]
